FAERS Safety Report 4815918-5 (Version None)
Quarter: 2005Q4

REPORT INFORMATION
  Report Type: 
  Country: None (occurrence: None)
  Receive Date: 20051026
  Receipt Date: 20051007
  Transmission Date: 20060501
  Serious: Yes (Other)
  Sender: FDA-Public Use
  Company Number: USA0510110407

PATIENT
  Age: 90 Year
  Sex: Female

DRUGS (3)
  1. CYMBALTA [Suspect]
     Indication: DEPRESSION
     Dates: start: 20051004, end: 20051006
  2. CIPRO [Concomitant]
  3. DEPAKOTE [Concomitant]

REACTIONS (4)
  - BLADDER DISORDER [None]
  - FAECAL INCONTINENCE [None]
  - GRAND MAL CONVULSION [None]
  - SOMNOLENCE [None]
